FAERS Safety Report 8812370 (Version 1)
Quarter: 2012Q4

REPORT INFORMATION
  Report Type: 
  Country: US (occurrence: US)
  Receive Date: 20120927
  Receipt Date: 20120927
  Transmission Date: 20130627
  Serious: No
  Sender: FDA-Public Use
  Company Number: US-PFIZER INC-2012234982

PATIENT
  Age: 62 Year
  Sex: Female
  Weight: 54.42 kg

DRUGS (3)
  1. LIPITOR [Suspect]
     Indication: BLOOD CHOLESTEROL INCREASED
     Dosage: 20 mg, daily
  2. TOPROL XL [Concomitant]
     Indication: HYPERTENSION
     Dosage: 50 mg, daily
  3. HYDROCHLOROTHIAZIDE/TRIAMTERENE [Concomitant]
     Indication: HYPERTENSION
     Dosage: 37.5mg/25mg, daily

REACTIONS (3)
  - Joint injury [Unknown]
  - Pain [Recovered/Resolved]
  - Discomfort [Recovered/Resolved]
